FAERS Safety Report 13955432 (Version 1)
Quarter: 2017Q3

REPORT INFORMATION
  Report Type: Spontaneous
  Country: GB (occurrence: GB)
  Receive Date: 20170911
  Receipt Date: 20170911
  Transmission Date: 20171128
  Serious: Yes (Other)
  Sender: FDA-Public Use
  Company Number: GB-DRREDDYS-GER/UKI/17/0093200

PATIENT
  Age: 40 Year
  Sex: Male
  Weight: 100 kg

DRUGS (3)
  1. GABAPENTIN. [Concomitant]
     Active Substance: GABAPENTIN
     Indication: PRODUCT USED FOR UNKNOWN INDICATION
  2. DULOXETINE DR. REDDY^S 60 MG GASTRO-RESISTANT CAPSULES, HARD [Suspect]
     Active Substance: DULOXETINE
     Indication: DIABETIC NEUROPATHY
     Route: 048
     Dates: start: 20170812
  3. ROSUVASTATIN CALCIUM. [Concomitant]
     Active Substance: ROSUVASTATIN CALCIUM
     Indication: PRODUCT USED FOR UNKNOWN INDICATION

REACTIONS (13)
  - Nausea [Recovered/Resolved]
  - Somnolence [Recovering/Resolving]
  - Yawning [Recovered/Resolved]
  - Dry mouth [Recovering/Resolving]
  - Tremor [Recovered/Resolved]
  - Vertigo [Recovered/Resolved]
  - Palpitations [Recovered/Resolved]
  - Decreased appetite [Recovering/Resolving]
  - Cold sweat [Recovered/Resolved]
  - Night sweats [Recovered/Resolved]
  - Dizziness postural [Recovered/Resolved]
  - Sluggishness [Recovering/Resolving]
  - Anorgasmia [Recovering/Resolving]

NARRATIVE: CASE EVENT DATE: 20170813
